FAERS Safety Report 5506581-9 (Version None)
Quarter: 2007Q4

REPORT INFORMATION
  Report Type: 
  Country: None (occurrence: None)
  Receive Date: 20071101
  Receipt Date: 20071005
  Transmission Date: 20080405
  Serious: Yes (Other)
  Sender: FDA-Public Use
  Company Number: 60629

PATIENT
  Age: 41 Year
  Sex: Male

DRUGS (1)
  1. IBUPROFEN [Suspect]
     Dosage: 2 TABS/TID/DURING THE PRECEDING 3 WEEKS

REACTIONS (3)
  - DRUG TOXICITY [None]
  - OPTIC NEURITIS [None]
  - VISUAL FIELD DEFECT [None]
